FAERS Safety Report 9385764 (Version 3)
Quarter: 2014Q1

REPORT INFORMATION
  Report Type: Spontaneous
  Country: US (occurrence: US)
  Receive Date: 20130705
  Receipt Date: 20140305
  Transmission Date: 20141002
  Serious: Yes (Hospitalization)
  Sender: FDA-Public Use
  Company Number: US-SANOFI-AVENTIS-2013SA051689

PATIENT
  Age: 81 Year
  Sex: Female
  Weight: 47.17 kg

DRUGS (6)
  1. AUBAGIO [Suspect]
     Indication: MULTIPLE SCLEROSIS
     Route: 048
     Dates: start: 20130221, end: 20130525
  2. AUBAGIO [Suspect]
     Indication: MULTIPLE SCLEROSIS
     Route: 048
     Dates: start: 20130221, end: 20130525
  3. LOVAZA [Concomitant]
     Indication: BLOOD CHOLESTEROL INCREASED
     Dosage: DOSE: 4 GRAM (4 CAPSULES)
     Route: 065
     Dates: start: 201302
  4. PLAVIX [Concomitant]
     Indication: CEREBROVASCULAR ACCIDENT PROPHYLAXIS
     Route: 065
     Dates: start: 1998
  5. LOSARTAN POTASSIUM [Concomitant]
     Indication: HYPERTENSION
     Route: 065
     Dates: start: 201302
  6. FOLIC ACID [Concomitant]
     Indication: HYPOVITAMINOSIS
     Route: 065
     Dates: start: 200401

REACTIONS (12)
  - Candida infection [Unknown]
  - Asthenia [Unknown]
  - Malaise [Unknown]
  - Back pain [Recovered/Resolved]
  - Dysuria [Recovered/Resolved]
  - Musculoskeletal discomfort [Unknown]
  - Oedema peripheral [Not Recovered/Not Resolved]
  - Oedema [Unknown]
  - Arthralgia [Not Recovered/Not Resolved]
  - Pain in extremity [Recovered/Resolved]
  - Gait disturbance [Recovered/Resolved]
  - Drug dose omission [Unknown]
